FAERS Safety Report 5843833-7 (Version None)
Quarter: 2008Q3

REPORT INFORMATION
  Report Type: 
  Country: None (occurrence: None)
  Receive Date: 20080813
  Receipt Date: 20080805
  Transmission Date: 20090109
  Serious: Yes (Other)
  Sender: FDA-Public Use
  Company Number: PHEH2008US06868

PATIENT
  Sex: Male

DRUGS (1)
  1. GLEEVEC [Suspect]
     Dosage: UNK, UNK
     Dates: end: 20080701

REACTIONS (4)
  - BODY TEMPERATURE DECREASED [None]
  - COUGH [None]
  - DEAFNESS UNILATERAL [None]
  - MUCOUS MEMBRANE DISORDER [None]
